FAERS Safety Report 19292784 (Version 1)
Quarter: 2021Q2

REPORT INFORMATION
  Report Type: Spontaneous
  Country: US (occurrence: US)
  Receive Date: 20210521
  Receipt Date: 20210521
  Transmission Date: 20210717
  Serious: No
  Sender: FDA-Public Use
  Company Number: None

PATIENT
  Age: 62 Year
  Sex: Female
  Weight: 79.3 kg

DRUGS (17)
  1. BIOTIN [Concomitant]
     Active Substance: BIOTIN
  2. OYSTER SHELL CALCIUM/VITAMIN D [Concomitant]
  3. CAPECITABINE. [Suspect]
     Active Substance: CAPECITABINE
     Indication: BREAST CANCER
     Route: 048
     Dates: start: 20210413, end: 20210510
  4. METOPROLOL SUCCINATE ER [Concomitant]
     Active Substance: METOPROLOL SUCCINATE
  5. ZOFRAN [Concomitant]
     Active Substance: ONDANSETRON HYDROCHLORIDE
  6. ALPRAZOLAM. [Concomitant]
     Active Substance: ALPRAZOLAM
  7. TUKYSA [Concomitant]
     Active Substance: TUCATINIB
  8. LOSARTAN POTASSIUM. [Concomitant]
     Active Substance: LOSARTAN POTASSIUM
  9. VITAMIN D3 [Concomitant]
     Active Substance: CHOLECALCIFEROL
  10. TRAMADOL HCL [Concomitant]
     Active Substance: TRAMADOL HYDROCHLORIDE
  11. ASPIRIN EC [Concomitant]
     Active Substance: ASPIRIN
  12. FUROSEMIDE. [Concomitant]
     Active Substance: FUROSEMIDE
  13. LETROZOLE. [Concomitant]
     Active Substance: LETROZOLE
  14. TYLENOL E [Concomitant]
  15. DIPHENHYDRAMINE HCL [Concomitant]
     Active Substance: DIPHENHYDRAMINE HYDROCHLORIDE
  16. WARFARIN [Concomitant]
     Active Substance: WARFARIN
  17. LORATADINE. [Concomitant]
     Active Substance: LORATADINE

REACTIONS (1)
  - Skin disorder [None]

NARRATIVE: CASE EVENT DATE: 20210510
